FAERS Safety Report 9405298 (Version 2)
Quarter: 2013Q3

REPORT INFORMATION
  Report Type: Spontaneous
  Country: US (occurrence: US)
  Receive Date: 20130717
  Receipt Date: 20130805
  Transmission Date: 20140515
  Serious: Yes (Other)
  Sender: FDA-Public Use
  Company Number: US-PERRIGO-13US007234

PATIENT
  Age: 82 Year
  Sex: Female

DRUGS (1)
  1. ACETAMINOPHEN-ASPIRIN-CAFFEINE 6X0 [Suspect]
     Indication: ARTHRITIS
     Dosage: 2 TABLETS, SINGLE
     Route: 048
     Dates: start: 20130707, end: 20130707

REACTIONS (5)
  - Hallucinations, mixed [Recovered/Resolved]
  - Feeling abnormal [Recovered/Resolved]
  - Irritability [Recovered/Resolved]
  - Speech disorder [Recovered/Resolved]
  - Insomnia [Recovered/Resolved]
